FAERS Safety Report 13024189 (Version 2)
Quarter: 2017Q1

REPORT INFORMATION
  Report Type: Spontaneous
  Country: JP (occurrence: JP)
  Receive Date: 20161213
  Receipt Date: 20170206
  Transmission Date: 20170428
  Serious: Yes (Hospitalization, Other)
  Sender: FDA-Public Use
  Company Number: JP-JNJFOC-20161209842

PATIENT

DRUGS (2)
  1. DUROTEP MT [Suspect]
     Active Substance: FENTANYL
     Indication: PAIN
     Route: 062
     Dates: end: 20161207
  2. TRAMCET [Concomitant]
     Active Substance: ACETAMINOPHEN\TRAMADOL
     Indication: PAIN
     Route: 048

REACTIONS (1)
  - Surgery [Unknown]
